FAERS Safety Report 11160513 (Version 1)
Quarter: 2015Q2

REPORT INFORMATION
  Report Type: Spontaneous
  Country: US (occurrence: US)
  Receive Date: 20150604
  Receipt Date: 20150604
  Transmission Date: 20150821
  Serious: No
  Sender: FDA-Public Use
  Company Number: US-SA-2014SA060802

PATIENT
  Age: 70 Year
  Sex: Male

DRUGS (5)
  1. LANTUS SOLOSTAR [Suspect]
     Active Substance: INSULIN GLARGINE
     Indication: TYPE 2 DIABETES MELLITUS
     Dosage: DOSE:26 UNIT(S)
     Route: 065
  2. METFORMIN [Concomitant]
     Active Substance: METFORMIN HYDROCHLORIDE
     Dosage: 1000 MG
  3. JANUVIA [Concomitant]
     Active Substance: SITAGLIPTIN PHOSPHATE
  4. LANTUS SOLOSTAR [Suspect]
     Active Substance: INSULIN GLARGINE
     Indication: TYPE 2 DIABETES MELLITUS
     Dosage: DOSE:10 UNIT(S)
     Route: 065
     Dates: start: 201308
  5. LANTUS SOLOSTAR [Suspect]
     Active Substance: INSULIN GLARGINE
     Indication: TYPE 2 DIABETES MELLITUS
     Dosage: DOSE:12 UNIT(S)
     Route: 065

REACTIONS (7)
  - Injection site pain [Unknown]
  - Hypertension [Unknown]
  - Blood glucose increased [Unknown]
  - Vertigo [Unknown]
  - Injection site haemorrhage [Unknown]
  - Anaemia [Unknown]
  - Incorrect product storage [Unknown]
